FAERS Safety Report 5267728-5 (Version None)
Quarter: 2007Q1

REPORT INFORMATION
  Report Type: 
  Country: None (occurrence: None)
  Receive Date: 20070316
  Receipt Date: 20070305
  Transmission Date: 20070707
  Serious: Yes (Other)
  Sender: FDA-Public Use
  Company Number: JP-PFIZER INC-2007010596

PATIENT
  Sex: Female
  Weight: 3.87 kg

DRUGS (3)
  1. DALACIN S [Suspect]
     Route: 064
     Dates: start: 20070101, end: 20070101
  2. EPINASTINE HYDROCHLORIDE [Suspect]
     Route: 064
  3. METHERGINE [Concomitant]
     Dates: start: 20070101, end: 20070202

REACTIONS (2)
  - APNOEIC ATTACK [None]
  - DRUG EXPOSURE DURING PREGNANCY [None]
